FAERS Safety Report 24559393 (Version 6)
Quarter: 2025Q1

REPORT INFORMATION
  Report Type: Spontaneous
  Country: US (occurrence: US)
  Receive Date: 20241029
  Receipt Date: 20250117
  Transmission Date: 20250409
  Serious: Yes (Other)
  Sender: AMGEN
  Company Number: US-AMGEN-USASP2024212417

PATIENT
  Age: 61 Year
  Sex: Female

DRUGS (32)
  1. XGEVA [Suspect]
     Active Substance: DENOSUMAB
     Indication: Malignant neoplasm of thymus
     Route: 065
     Dates: end: 202410
  2. CABOMETYX [Suspect]
     Active Substance: CABOZANTINIB S-MALATE
     Indication: Malignant neoplasm of thymus
     Dosage: 60 MILLIGRAM, QD
     Route: 065
     Dates: start: 20240902, end: 20241021
  3. CABOMETYX [Suspect]
     Active Substance: CABOZANTINIB S-MALATE
     Indication: Renal cancer
     Dosage: 40 MILLIGRAM, QD
     Route: 048
     Dates: start: 20240319
  4. CABOMETYX [Suspect]
     Active Substance: CABOZANTINIB S-MALATE
     Dosage: 40 MILLIGRAM, QD
     Route: 048
  5. OPDIVO [Suspect]
     Active Substance: NIVOLUMAB
     Indication: Renal cancer
     Route: 065
  6. ONDANSETRON [Suspect]
     Active Substance: ONDANSETRON
     Indication: Nausea
     Route: 065
  7. HYDROCORTISONE [Concomitant]
     Active Substance: HYDROCORTISONE
  8. FLUDROCORTISONE [Concomitant]
     Active Substance: FLUDROCORTISONE
  9. WELLBUTRIN [Concomitant]
     Active Substance: BUPROPION HYDROCHLORIDE
  10. LEXAPRO [Concomitant]
     Active Substance: ESCITALOPRAM OXALATE
  11. GABAPENTIN [Concomitant]
     Active Substance: GABAPENTIN
  12. IVERMECTIN [Concomitant]
     Active Substance: IVERMECTIN
  13. CALTRATE [Concomitant]
     Active Substance: CALCIUM CARBONATE
  14. VITAMIN D [Concomitant]
     Active Substance: VITAMIN D NOS
     Route: 065
  15. LANREOTIDE [Concomitant]
     Active Substance: LANREOTIDE
  16. VITAMINS [Concomitant]
     Active Substance: VITAMINS
  17. EVEROLIMUS [Concomitant]
     Active Substance: EVEROLIMUS
  18. ACETAMINOPHEN [Concomitant]
     Active Substance: ACETAMINOPHEN
     Route: 065
  19. LOSARTAN POTASSIUM [Concomitant]
     Active Substance: LOSARTAN POTASSIUM
     Route: 065
  20. PEPCID [Concomitant]
     Active Substance: FAMOTIDINE
     Route: 065
  21. PROBIOTICS NOS [Concomitant]
     Active Substance: PROBIOTICS NOS
     Route: 065
  22. PROCHLORPERAZINE [Concomitant]
     Active Substance: PROCHLORPERAZINE
     Route: 065
  23. EZETIMIBE [Concomitant]
     Active Substance: EZETIMIBE
  24. CLONIDINE HYDROCHLORIDE [Concomitant]
     Active Substance: CLONIDINE HYDROCHLORIDE
  25. HYDROCHLOROTHIAZIDE [Concomitant]
     Active Substance: HYDROCHLOROTHIAZIDE
  26. PANTOPRAZOLE [Concomitant]
     Active Substance: PANTOPRAZOLE
  27. LOMOTIL [Concomitant]
     Active Substance: ATROPINE SULFATE\DIPHENOXYLATE HYDROCHLORIDE
  28. PREDNISONE [Concomitant]
     Active Substance: PREDNISONE
  29. LEVOTHYROXINE [Concomitant]
     Active Substance: LEVOTHYROXINE
  30. COMPAZINE [Concomitant]
     Active Substance: PROCHLORPERAZINE MALEATE
  31. PHENERGAN [Concomitant]
     Active Substance: PROMETHAZINE HYDROCHLORIDE
  32. PROPRANOLOL [Concomitant]
     Active Substance: PROPRANOLOL HYDROCHLORIDE
     Route: 065

REACTIONS (34)
  - Urinary tract infection [Unknown]
  - Blood pressure increased [Recovering/Resolving]
  - Colitis ischaemic [Not Recovered/Not Resolved]
  - Pain in extremity [Not Recovered/Not Resolved]
  - Nausea [Not Recovered/Not Resolved]
  - Headache [Recovered/Resolved]
  - Dyspepsia [Recovered/Resolved]
  - Fatigue [Not Recovered/Not Resolved]
  - Blood thyroid stimulating hormone increased [Unknown]
  - Pruritus [Unknown]
  - Pain [Not Recovered/Not Resolved]
  - Constipation [Unknown]
  - Off label use [Unknown]
  - Intentional dose omission [Unknown]
  - Dysphonia [Unknown]
  - Blood sodium decreased [Unknown]
  - Asthenia [Not Recovered/Not Resolved]
  - Injection site pain [Unknown]
  - Feeling abnormal [Unknown]
  - Nasopharyngitis [Unknown]
  - Skin exfoliation [Unknown]
  - Malaise [Unknown]
  - Faeces hard [Unknown]
  - Faeces discoloured [Unknown]
  - Nausea [Unknown]
  - Thyroid disorder [Not Recovered/Not Resolved]
  - Decreased appetite [Not Recovered/Not Resolved]
  - Dehydration [Not Recovered/Not Resolved]
  - Adrenal neoplasm [Not Recovered/Not Resolved]
  - Diarrhoea [Not Recovered/Not Resolved]
  - COVID-19 [Not Recovered/Not Resolved]
  - Constipation [Not Recovered/Not Resolved]
  - Therapy interrupted [Unknown]
  - Skin hyperpigmentation [Unknown]

NARRATIVE: CASE EVENT DATE: 20240101
